FAERS Safety Report 22034174 (Version 1)
Quarter: 2023Q1

REPORT INFORMATION
  Report Type: Spontaneous
  Country: US (occurrence: US)
  Receive Date: 20230224
  Receipt Date: 20230224
  Transmission Date: 20230417
  Serious: No
  Sender: FDA-Public Use
  Company Number: US-SA-SAC20230223000087

PATIENT
  Sex: Female

DRUGS (3)
  1. THYROGEN [Suspect]
     Active Substance: THYROTROPIN ALFA
     Indication: Thyroid cancer
     Dosage: 0.9 MG, QD
     Route: 030
     Dates: start: 202302
  2. THYROGEN [Suspect]
     Active Substance: THYROTROPIN ALFA
     Indication: Metastases to lung
     Dosage: 0.9 MG, QD
     Route: 030
  3. THYROGEN [Suspect]
     Active Substance: THYROTROPIN ALFA
     Indication: Benign breast neoplasm

REACTIONS (5)
  - Pyrexia [Recovering/Resolving]
  - Diarrhoea [Recovering/Resolving]
  - Nausea [Recovering/Resolving]
  - Chills [Recovering/Resolving]
  - Urticaria [Recovering/Resolving]
